FAERS Safety Report 4614312-X (Version None)
Quarter: 2005Q1

REPORT INFORMATION
  Report Type: 
  Country: None (occurrence: None)
  Receive Date: 20050315
  Receipt Date: 20050301
  Transmission Date: 20050727
  Serious: Yes (Hospitalization)
  Sender: FDA-Public Use
  Company Number: A03200500578

PATIENT
  Sex: Female

DRUGS (4)
  1. ELOXATIN [Suspect]
     Indication: COLON CANCER
     Dosage: INTRAVENOUS NOS
     Route: 042
     Dates: start: 20050214, end: 20050214
  2. FLUOROURACIL [Concomitant]
  3. LEUCOVORIN CALCIUM [Concomitant]
  4. BEVACIZUMAB [Concomitant]

REACTIONS (5)
  - CONVULSION [None]
  - FALL [None]
  - FOAMING AT MOUTH [None]
  - INFUSION RELATED REACTION [None]
  - TREMOR [None]
